FAERS Safety Report 16030618 (Version 16)
Quarter: 2023Q1

REPORT INFORMATION
  Report Type: Spontaneous
  Country: US (occurrence: US)
  Receive Date: 20190304
  Receipt Date: 20230206
  Transmission Date: 20230417
  Serious: Yes (Other)
  Sender: FDA-Public Use
  Company Number: US-PFIZER INC-2019088942

PATIENT
  Age: 72 Year
  Sex: Female
  Weight: 86.18 kg

DRUGS (4)
  1. SOMAVERT [Suspect]
     Active Substance: PEGVISOMANT
     Indication: Acromegaly
     Dosage: 15 MG, DAILY
  2. SOMAVERT [Suspect]
     Active Substance: PEGVISOMANT
     Indication: Insulin-like growth factor increased
     Dosage: UNK
     Dates: start: 20170606
  3. SOMAVERT [Suspect]
     Active Substance: PEGVISOMANT
     Dosage: 20 MG, DAILY (20MG SHOT EVERY DAY)
  4. SOMAVERT [Suspect]
     Active Substance: PEGVISOMANT
     Dosage: 20 MG,EVERY OTHER DAY

REACTIONS (18)
  - Neoplasm [Unknown]
  - Pituitary tumour benign [Unknown]
  - Therapeutic product effect incomplete [Unknown]
  - Product dose omission issue [Unknown]
  - Intentional product misuse [Unknown]
  - Arthralgia [Not Recovered/Not Resolved]
  - Nasopharyngitis [Unknown]
  - Dysphonia [Unknown]
  - Hypoacusis [Unknown]
  - Cough [Unknown]
  - Hypersensitivity [Unknown]
  - Cardiomegaly [Unknown]
  - Skin disorder [Unknown]
  - Injection site pain [Unknown]
  - Needle issue [Unknown]
  - Fatigue [Recovered/Resolved]
  - Sinusitis [Unknown]
  - Off label use [Unknown]
